FAERS Safety Report 25434050 (Version 1)
Quarter: 2025Q2

REPORT INFORMATION
  Report Type: Report from Study
  Country: US (occurrence: US)
  Receive Date: 20250613
  Receipt Date: 20250613
  Transmission Date: 20250716
  Serious: Yes (Hospitalization, Other)
  Sender: ADC THERAPEUTICS
  Company Number: US-ADC THERAPEUTICS SA-ADC-2025-000140

PATIENT

DRUGS (1)
  1. ZYNLONTA [Suspect]
     Active Substance: LONCASTUXIMAB TESIRINE-LPYL
     Indication: Product used for unknown indication
     Route: 042
     Dates: start: 20250512, end: 20250512

REACTIONS (2)
  - Pancytopenia [Not Recovered/Not Resolved]
  - Hypervolaemia [Not Recovered/Not Resolved]

NARRATIVE: CASE EVENT DATE: 20250525
